FAERS Safety Report 22026108 (Version 2)
Quarter: 2024Q1

REPORT INFORMATION
  Report Type: Spontaneous
  Country: US (occurrence: None)
  Receive Date: 20230223
  Receipt Date: 20240207
  Transmission Date: 20240410
  Serious: No
  Sender: FDA-Public Use
  Company Number: US-ROCHE-3131805

PATIENT
  Sex: Female

DRUGS (10)
  1. XOLAIR [Suspect]
     Active Substance: OMALIZUMAB
     Indication: Urticaria
     Dosage: STRENGTH :150 MG
     Route: 058
     Dates: start: 20220308
  2. XOLAIR [Suspect]
     Active Substance: OMALIZUMAB
     Indication: Hidradenitis
  3. XOLAIR [Suspect]
     Active Substance: OMALIZUMAB
     Indication: Dermatitis atopic
  4. XOLAIR [Suspect]
     Active Substance: OMALIZUMAB
     Indication: Neurodermatitis
  5. XOLAIR [Suspect]
     Active Substance: OMALIZUMAB
     Indication: Urticaria
  6. HUMIRA [Suspect]
     Active Substance: ADALIMUMAB
     Indication: Urticaria
     Route: 065
  7. HUMIRA [Suspect]
     Active Substance: ADALIMUMAB
     Indication: Neurodermatitis
  8. HUMIRA [Suspect]
     Active Substance: ADALIMUMAB
     Indication: Hidradenitis
  9. HUMIRA [Suspect]
     Active Substance: ADALIMUMAB
     Indication: Dermatitis atopic
  10. HUMIRA [Suspect]
     Active Substance: ADALIMUMAB
     Indication: Urticaria

REACTIONS (1)
  - Condition aggravated [Unknown]
